FAERS Safety Report 16464513 (Version 1)
Quarter: 2019Q2

REPORT INFORMATION
  Report Type: Spontaneous
  Country: NL (occurrence: NL)
  Receive Date: 20190621
  Receipt Date: 20190621
  Transmission Date: 20190711
  Serious: Yes (Other)
  Sender: FDA-Public Use
  Company Number: PHHY2019NL136980

PATIENT
  Age: 69 Year
  Sex: Female

DRUGS (12)
  1. LITHIUM. [Suspect]
     Active Substance: LITHIUM
     Indication: MANIA
     Dosage: 300 MG, UNK
     Route: 065
  2. LITHIUM. [Suspect]
     Active Substance: LITHIUM
     Dosage: 200 MG, QD
     Route: 065
  3. THYROXINE [Concomitant]
     Active Substance: LEVOTHYROXINE
     Indication: PRODUCT USED FOR UNKNOWN INDICATION
     Dosage: 75 UG, QD
     Route: 065
  4. VALPROATE [Concomitant]
     Active Substance: VALPROIC ACID
     Indication: PROPHYLAXIS
     Dosage: UNK
     Route: 065
  5. SERTRALINE [Suspect]
     Active Substance: SERTRALINE HYDROCHLORIDE
     Indication: DEPRESSION
     Dosage: UNK
     Route: 065
  6. LITHIUM. [Suspect]
     Active Substance: LITHIUM
     Indication: BIPOLAR I DISORDER
     Dosage: UNK
     Route: 065
  7. NORTRIPTYLINE [Suspect]
     Active Substance: NORTRIPTYLINE
     Indication: DEPRESSION
     Dosage: UNK
     Route: 065
  8. QUETIAPINE. [Suspect]
     Active Substance: QUETIAPINE
     Indication: DEPRESSION
     Dosage: UNK
     Route: 065
  9. TRANYLCYPROMINE [Suspect]
     Active Substance: TRANYLCYPROMINE
     Indication: DEPRESSION
     Dosage: UNK
     Route: 065
  10. ATENOLOL. [Concomitant]
     Active Substance: ATENOLOL
     Indication: HYPERTENSION
     Dosage: 25 MG, QD
     Route: 065
  11. REPAGLINIDE. [Concomitant]
     Active Substance: REPAGLINIDE
     Indication: DIABETES MELLITUS
     Dosage: 4 MG, QD
     Route: 065
  12. SIMVASTATINE [Concomitant]
     Active Substance: SIMVASTATIN
     Indication: PRODUCT USED FOR UNKNOWN INDICATION
     Dosage: 20 MG, UNK
     Route: 065

REACTIONS (5)
  - Nephropathy [Recovered/Resolved]
  - Drug ineffective [Unknown]
  - Renal impairment [Recovered/Resolved]
  - Chronic kidney disease [Recovered/Resolved]
  - End stage renal disease [Recovered/Resolved]
